FAERS Safety Report 9462095 (Version 1)
Quarter: 2013Q3

REPORT INFORMATION
  Report Type: Spontaneous
  Country: US (occurrence: None)
  Receive Date: 20130815
  Receipt Date: 20130815
  Transmission Date: 20140515
  Serious: Yes (Hospitalization)
  Sender: FDA-Public Use
  Company Number: None

PATIENT
  Age: 86 Year
  Sex: Female
  Weight: 40.2 kg

DRUGS (17)
  1. DIGOXIN [Suspect]
     Dosage: CHRONIC
     Route: 048
  2. COREG [Suspect]
     Dosage: CHRONIC
     Route: 048
  3. SPIRONOLACTONE [Concomitant]
  4. OMEPRAZOLE [Concomitant]
  5. RANITIDINE [Concomitant]
  6. HUMULIN N [Concomitant]
  7. HUMULIN R [Concomitant]
  8. LOSARTAN [Concomitant]
  9. VIT D3 [Concomitant]
  10. VITAMIN B12 [Concomitant]
  11. DONEPEZIL [Concomitant]
  12. NAMENDA [Concomitant]
  13. ASA [Concomitant]
  14. TYLENOL ARTHRITIS [Concomitant]
  15. SYNTHROID [Concomitant]
  16. CLONIDINE [Concomitant]
  17. COREG [Concomitant]

REACTIONS (4)
  - Bradycardia [None]
  - Toxicity to various agents [None]
  - Hypophagia [None]
  - Dysphagia [None]
